FAERS Safety Report 9835940 (Version 2)
Quarter: 2014Q2

REPORT INFORMATION
  Report Type: Spontaneous
  Country: FI (occurrence: FI)
  Receive Date: 20140122
  Receipt Date: 20140401
  Transmission Date: 20141212
  Serious: Yes (Disabling, Other)
  Sender: FDA-Public Use
  Company Number: FI-ABBVIE-14P-055-1191526-00

PATIENT
  Sex: Female

DRUGS (1)
  1. HUMIRA [Suspect]
     Indication: PRODUCT USED FOR UNKNOWN INDICATION

REACTIONS (3)
  - Blindness [Not Recovered/Not Resolved]
  - Uveitis [Unknown]
  - Eye inflammation [Unknown]
